FAERS Safety Report 7670781-2 (Version None)
Quarter: 2011Q3

REPORT INFORMATION
  Report Type: 
  Country: None (occurrence: None)
  Receive Date: 20110809
  Receipt Date: 20110728
  Transmission Date: 20111222
  Serious: Yes (Hospitalization, Other)
  Sender: FDA-Public Use
  Company Number: US-BRISTOL-MYERS SQUIBB COMPANY-15933500

PATIENT
  Age: 84 Year
  Sex: Male
  Weight: 70 kg

DRUGS (4)
  1. WARFARIN SODIUM [Suspect]
     Dosage: 4MG FOR 5DAYS AND 2MG FOR 2DAYS A WEEK
  2. GABAPENTIN [Concomitant]
     Indication: ARTHRITIS
     Dates: start: 20110326
  3. LYRICA [Concomitant]
     Indication: PAIN
     Dates: start: 19940101, end: 20110724
  4. CELEBREX [Concomitant]
     Indication: ARTHRITIS

REACTIONS (7)
  - CATARACT [None]
  - PULMONARY OEDEMA [None]
  - HEART RATE IRREGULAR [None]
  - DIARRHOEA [None]
  - VISION BLURRED [None]
  - INTERNATIONAL NORMALISED RATIO INCREASED [None]
  - PAIN [None]
